FAERS Safety Report 5244283-7 (Version None)
Quarter: 2007Q1

REPORT INFORMATION
  Report Type: 
  Country: None (occurrence: None)
  Receive Date: 20070222
  Receipt Date: 20070219
  Transmission Date: 20070707
  Serious: Yes (Disabling)
  Sender: FDA-Public Use
  Company Number: US-MERCK-0702USA03592

PATIENT
  Age: 70 Year
  Sex: Female

DRUGS (14)
  1. JANUVIA [Suspect]
     Indication: DIABETES MELLITUS
     Route: 048
     Dates: start: 20061101, end: 20070101
  2. ASPIRIN [Concomitant]
     Route: 065
  3. NEXIUM [Concomitant]
     Route: 065
  4. CARDIZEM [Concomitant]
     Route: 065
  5. LASIX [Concomitant]
     Route: 065
  6. AMIODARONE HYDROCHLORIDE [Concomitant]
     Route: 065
  7. SINGULAIR [Concomitant]
     Route: 065
  8. LIPITOR [Concomitant]
     Route: 065
  9. ALTACE [Concomitant]
     Route: 065
  10. LYRICA [Concomitant]
     Route: 065
  11. COUMADIN [Concomitant]
     Route: 065
  12. ATROVENT [Concomitant]
     Route: 065
  13. MUCINEX [Concomitant]
     Route: 065
  14. METFORMIN HYDROCHLORIDE [Concomitant]
     Route: 065
     Dates: start: 20061201

REACTIONS (3)
  - DRUG INEFFECTIVE [None]
  - FALL [None]
  - MUSCULAR WEAKNESS [None]
